FAERS Safety Report 5791969-1 (Version None)
Quarter: 2008Q2

REPORT INFORMATION
  Report Type: 
  Country: None (occurrence: None)
  Receive Date: 20080618
  Receipt Date: 20080321
  Transmission Date: 20081010
  Serious: Yes (Hospitalization)
  Sender: FDA-Public Use
  Company Number: 200811815US

PATIENT
  Sex: Female

DRUGS (10)
  1. LANTUS [Suspect]
     Dosage: 18 U BID SC
     Route: 058
  2. HUMALOG [Concomitant]
  3. LISINOPRIL [Concomitant]
  4. ATENOLOL [Concomitant]
  5. TRIAMTERENE [Concomitant]
  6. ACETYLSALICYLIC ACID SRT [Concomitant]
  7. PIOGLITAZONE [Concomitant]
  8. AMBIEN [Concomitant]
  9. RANITIDINE HYDROCHLORIDE (ZANTAC) [Concomitant]
  10. XANAX [Concomitant]

REACTIONS (2)
  - BLOOD GLUCOSE INCREASED [None]
  - DRUG INEFFECTIVE [None]
